FAERS Safety Report 8386278-0 (Version None)
Quarter: 2012Q2

REPORT INFORMATION
  Report Type: 
  Country: None (occurrence: None)
  Receive Date: 20120525
  Receipt Date: 20120522
  Transmission Date: 20120825
  Serious: Yes (Hospitalization)
  Sender: FDA-Public Use
  Company Number: BR-PFIZER INC-2010012912

PATIENT
  Age: 88 Year
  Sex: Female

DRUGS (7)
  1. BUFFERIN [Concomitant]
     Dosage: UNK
  2. OLMESARTAN MEDOXOMIL AND HYDROCHLOROTHIZIDE [Suspect]
     Indication: HYPERTENSION
     Dosage: [OLMESARTAN MEDOXOMIL 20MG] / [HYDROCHLOROTHIAZIDE 12.5MG] (ONE TABLET), 1X/DAY
     Route: 048
     Dates: start: 20091026
  3. LASIX [Concomitant]
  4. FORMOTEROL FUMARATE [Concomitant]
  5. ISOSORBIDE MONONITRATE [Concomitant]
  6. NORVASC [Suspect]
     Dosage: UNK
     Route: 048
     Dates: start: 20091026
  7. SUSTRATE [Concomitant]
     Dosage: UNK

REACTIONS (2)
  - CHEST PAIN [None]
  - RESPIRATORY DISORDER [None]
